FAERS Safety Report 7403464-4 (Version None)
Quarter: 2011Q2

REPORT INFORMATION
  Report Type: 
  Country: None (occurrence: None)
  Receive Date: 20110408
  Receipt Date: 20110401
  Transmission Date: 20111010
  Serious: Yes (Other)
  Sender: FDA-Public Use
  Company Number: B0710209A

PATIENT
  Sex: Female

DRUGS (5)
  1. DEROXAT [Suspect]
     Indication: DEPRESSION
     Dosage: 20MG PER DAY
     Route: 048
     Dates: start: 20101027
  2. TRAVATAN [Suspect]
     Indication: OCULAR HYPERTENSION
     Dosage: 1DROP PER DAY
     Route: 047
     Dates: start: 20110101, end: 20110113
  3. OESTRODOSE [Concomitant]
     Indication: POSTMENOPAUSE
     Dosage: 1UNIT AT NIGHT
     Route: 061
     Dates: start: 20070101
  4. XANAX [Concomitant]
     Indication: DEPRESSION
     Dosage: .5MG AT NIGHT
     Route: 048
     Dates: start: 20100921
  5. UTROGESTAN [Concomitant]
     Indication: POSTMENOPAUSE
     Dosage: 100MG AT NIGHT
     Route: 048
     Dates: start: 20070101

REACTIONS (4)
  - RETINAL HAEMORRHAGE [None]
  - VISUAL IMPAIRMENT [None]
  - OCULAR DISCOMFORT [None]
  - PHOTOPSIA [None]
